FAERS Safety Report 5475682-6 (Version None)
Quarter: 2007Q3

REPORT INFORMATION
  Report Type: 
  Country: None (occurrence: None)
  Receive Date: 20070928
  Receipt Date: 20070928
  Transmission Date: 20080115
  Serious: Yes (Life-Threatening)
  Sender: FDA-Public Use
  Company Number: None

PATIENT
  Age: 60 Year
  Sex: Female
  Weight: 99.8 kg

DRUGS (1)
  1. NOVOSEVEN [Suspect]
     Indication: HAEMOSTASIS
     Dosage: 4800 MCG 2 DOSES IV BOLUS
     Route: 040
     Dates: start: 20070917, end: 20070917

REACTIONS (3)
  - CEREBELLAR INFARCTION [None]
  - DEPRESSED LEVEL OF CONSCIOUSNESS [None]
  - TROPONIN INCREASED [None]
